FAERS Safety Report 16252643 (Version 1)
Quarter: 2019Q2

REPORT INFORMATION
  Report Type: Spontaneous
  Country: US (occurrence: US)
  Receive Date: 20190429
  Receipt Date: 20190429
  Transmission Date: 20190711
  Serious: No
  Sender: FDA-Public Use
  Company Number: US-ASTRAZENECA-2019SE49814

PATIENT
  Sex: Male

DRUGS (1)
  1. IMFINZI [Suspect]
     Active Substance: DURVALUMAB
     Indication: RADIOTHERAPY
     Route: 042
     Dates: start: 201807, end: 201811

REACTIONS (2)
  - Hypothyroidism [Unknown]
  - Hyperthyroidism [Unknown]
